FAERS Safety Report 18345665 (Version 1)
Quarter: 2020Q4

REPORT INFORMATION
  Report Type: Report from Study
  Country: US (occurrence: US)
  Receive Date: 20201005
  Receipt Date: 20201005
  Transmission Date: 20210114
  Serious: Yes (Hospitalization)
  Sender: FDA-Public Use
  Company Number: US-JNJFOC-A-NJ2019-190733

PATIENT
  Age: 71 Year
  Sex: Female
  Weight: 74.91 kg

DRUGS (3)
  1. OPSUMIT [Suspect]
     Active Substance: MACITENTAN
     Indication: PULMONARY ARTERIAL HYPERTENSION
     Dosage: 10 MG, QD
     Route: 048
  2. TYVASO [Suspect]
     Active Substance: TREPROSTINIL
     Indication: PRODUCT USED FOR UNKNOWN INDICATION
     Route: 065
  3. PREDNISONE. [Suspect]
     Active Substance: PREDNISONE
     Indication: PRODUCT USED FOR UNKNOWN INDICATION
     Dosage: UNK
     Route: 065
     Dates: end: 201904

REACTIONS (23)
  - Seasonal allergy [Unknown]
  - Arthropathy [Unknown]
  - Joint stiffness [Unknown]
  - Withdrawal syndrome [Unknown]
  - Chest pain [Unknown]
  - Dyspnoea exertional [Recovered/Resolved]
  - Pain [Unknown]
  - Dizziness [Recovering/Resolving]
  - Dyspnoea [Unknown]
  - Blood pressure systolic decreased [Unknown]
  - Sensitivity to weather change [Unknown]
  - Dysphonia [Unknown]
  - Arthralgia [Unknown]
  - Bronchial irritation [Unknown]
  - Bronchitis [Unknown]
  - Gait disturbance [Unknown]
  - Hypoaesthesia [Unknown]
  - Discomfort [Unknown]
  - Knee arthroplasty [Unknown]
  - General physical condition [Unknown]
  - Cough [Unknown]
  - Blood pressure decreased [Recovering/Resolving]
  - Oropharyngeal pain [Unknown]

NARRATIVE: CASE EVENT DATE: 20191118
